FAERS Safety Report 13439475 (Version 3)
Quarter: 2017Q2

REPORT INFORMATION
  Report Type: Report from Study
  Country: IT (occurrence: IT)
  Receive Date: 20170412
  Receipt Date: 20170427
  Transmission Date: 20170830
  Serious: Yes (Other)
  Sender: FDA-Public Use
  Company Number: IT-MYLANLABS-2017M1022406

PATIENT

DRUGS (1)
  1. CLARITHROMYCIN. [Suspect]
     Active Substance: CLARITHROMYCIN
     Indication: OROPHARYNGEAL PAIN
     Dosage: UNK

REACTIONS (2)
  - Diarrhoea [Unknown]
  - Erythema [Unknown]

NARRATIVE: CASE EVENT DATE: 20170226
